FAERS Safety Report 11247263 (Version 1)
Quarter: 2015Q3

REPORT INFORMATION
  Report Type: Spontaneous
  Country: TR (occurrence: None)
  Receive Date: 20150706
  Receipt Date: 20150706
  Transmission Date: 20151125
  Serious: Yes (Death, Hospitalization, Other)
  Sender: FDA-Public Use
  Company Number: CO-LA-TR-2015-021

PATIENT
  Age: 66 Year
  Sex: Female

DRUGS (2)
  1. WARFARIN [Suspect]
     Active Substance: WARFARIN
     Indication: ANTICOAGULANT THERAPY
  2. DIGOXIN. [Suspect]
     Active Substance: DIGOXIN
     Indication: ANTICOAGULANT THERAPY

REACTIONS (2)
  - Spinal epidural haematoma [None]
  - International normalised ratio increased [None]
